FAERS Safety Report 4714250-8 (Version None)
Quarter: 2005Q3

REPORT INFORMATION
  Report Type: 
  Country: None (occurrence: None)
  Receive Date: 20050714
  Receipt Date: 20050523
  Transmission Date: 20060218
  Serious: Yes (Other)
  Sender: FDA-Public Use
  Company Number: PHBS2005BE07523

PATIENT
  Age: 51 Year
  Sex: Female

DRUGS (3)
  1. AREDIA [Suspect]
     Indication: BREAST CANCER
     Dosage: 90 MG, QW2
     Route: 042
     Dates: start: 20000801
  2. ZOLADEX [Concomitant]
     Dates: start: 20000801
  3. NOLVADEX [Concomitant]
     Dosage: 20 MG/D
     Dates: start: 20000801

REACTIONS (7)
  - ABSCESS DRAINAGE [None]
  - ABSCESS JAW [None]
  - ASEPTIC NECROSIS BONE [None]
  - GINGIVAL DISORDER [None]
  - PERIODONTAL DISEASE [None]
  - POST PROCEDURAL FISTULA [None]
  - WOUND DEBRIDEMENT [None]
